FAERS Safety Report 19916713 (Version 1)
Quarter: 2021Q4

REPORT INFORMATION
  Report Type: Spontaneous
  Country: US (occurrence: US)
  Receive Date: 20211004
  Receipt Date: 20211004
  Transmission Date: 20220303
  Serious: No
  Sender: FDA-Public Use
  Company Number: None

PATIENT
  Sex: Female

DRUGS (2)
  1. DESOXIMETASONE [Suspect]
     Active Substance: DESOXIMETASONE
  2. CLOBETASOL [Suspect]
     Active Substance: CLOBETASOL

REACTIONS (1)
  - Treatment failure [None]
